FAERS Safety Report 5866523-3 (Version None)
Quarter: 2008Q3

REPORT INFORMATION
  Report Type: 
  Country: None (occurrence: None)
  Receive Date: 20080902
  Receipt Date: 20080902
  Transmission Date: 20090109
  Serious: Yes (Death, Hospitalization)
  Sender: FDA-Public Use
  Company Number: PHEH1998US08729

PATIENT
  Sex: Male
  Weight: 123 kg

DRUGS (15)
  1. SANDIMMUNE [Suspect]
     Route: 048
     Dates: start: 19960816, end: 19980626
  2. VASOTEC [Concomitant]
  3. QUINAGLUTE [Concomitant]
  4. POTASSIUM CHLORIDE [Concomitant]
  5. LASIX [Concomitant]
  6. ZOVIRAX [Concomitant]
  7. CELLCEPT [Concomitant]
  8. PREDNISONE TAB [Concomitant]
  9. BACTRIM DS [Concomitant]
  10. IMDUR [Concomitant]
  11. AXID [Concomitant]
  12. HYDRALAZINE HCL [Concomitant]
  13. MAGNESIUM SULFATE [Concomitant]
  14. CALCIUM [Concomitant]
  15. DOBUTAMINE HCL [Concomitant]

REACTIONS (4)
  - ABDOMINAL HERNIA [None]
  - DEATH [None]
  - LEFT VENTRICULAR FAILURE [None]
  - PNEUMONIA [None]
